FAERS Safety Report 4463061-X (Version None)
Quarter: 2004Q3

REPORT INFORMATION
  Report Type: 
  Country: None (occurrence: None)
  Receive Date: 20040928
  Receipt Date: 20040913
  Transmission Date: 20050211
  Serious: Yes (Death)
  Sender: FDA-Public Use
  Company Number: JP-2004-028384

PATIENT
  Age: 41 Year
  Sex: Female
  Weight: 37.8 kg

DRUGS (7)
  1. FLUDARA [Suspect]
     Indication: CHRONIC LYMPHOCYTIC LEUKAEMIA
     Dosage: 26 MG, CYCLE X 5D, INTRAVENOUS
     Route: 042
     Dates: start: 20001130, end: 20001204
  2. FLUDARA [Suspect]
     Indication: CHRONIC LYMPHOCYTIC LEUKAEMIA
     Dosage: 26 MG, CYCLE X 5D, INTRAVENOUS
     Route: 042
     Dates: start: 20001228, end: 20010101
  3. KYTRIL [Concomitant]
  4. PREDONINE [Concomitant]
  5. ZANTAC (RANITIDINE HYDROCDHLORIDE) [Concomitant]
  6. SOLU-CORTEF [Concomitant]
  7. SOLDEM 3A (SODIUM LACTATE, CARBOHYDRATE NOS) [Concomitant]

REACTIONS (2)
  - CEREBRAL HAEMORRHAGE [None]
  - LYMPHADENOPATHY [None]
